FAERS Safety Report 9617539 (Version 7)
Quarter: 2014Q2

REPORT INFORMATION
  Report Type: Report from Study
  Country: GB (occurrence: GB)
  Receive Date: 20131011
  Receipt Date: 20140604
  Transmission Date: 20141212
  Serious: Yes (Other)
  Sender: FDA-Public Use
  Company Number: GB-VIIV HEALTHCARE LIMITED-B0929382A

PATIENT
  Age: 53 Year
  Sex: Male
  Weight: 56.9 kg

DRUGS (11)
  1. NO THERAPY-VIIV [Suspect]
     Indication: HIV INFECTION
     Route: 048
  2. DARUNAVIR [Concomitant]
     Indication: HIV INFECTION
     Dosage: 800MG PER DAY
     Dates: start: 20110813
  3. RALTEGRAVIR [Concomitant]
     Indication: HIV INFECTION
     Dosage: 400MG TWICE PER DAY
     Dates: start: 20110215
  4. RITONAVIR [Concomitant]
     Indication: HIV INFECTION
     Dosage: 100MG PER DAY
     Dates: start: 20110813
  5. ZIDOVUDINE [Concomitant]
     Indication: HIV INFECTION
     Dosage: 250MG TWICE PER DAY
     Dates: start: 19970724, end: 20131011
  6. ETRAVIRINE [Concomitant]
     Indication: HIV INFECTION
     Dosage: 200MG TWICE PER DAY
     Dates: start: 20131011
  7. ROSUVASTATIN [Concomitant]
     Indication: HYPERCHOLESTEROLAEMIA
     Route: 048
     Dates: start: 20040827
  8. CYCLIZINE [Concomitant]
     Dosage: 150MG PER DAY
  9. DOMPERIDONE [Concomitant]
     Dosage: 30MG PER DAY
  10. PARACETAMOL [Concomitant]
     Dosage: 4G PER DAY
  11. ZOPICLONE [Concomitant]
     Dosage: 225MG PER DAY

REACTIONS (1)
  - Anal squamous cell carcinoma [Recovered/Resolved]
